FAERS Safety Report 7345327-9 (Version None)
Quarter: 2011Q1

REPORT INFORMATION
  Report Type: 
  Country: None (occurrence: None)
  Receive Date: 20110310
  Receipt Date: 20110301
  Transmission Date: 20110831
  Serious: Yes (Other)
  Sender: FDA-Public Use
  Company Number: US-CEPHALON-2011000977

PATIENT
  Sex: Female
  Weight: 60 kg

DRUGS (3)
  1. PROVIGIL [Suspect]
     Indication: FATIGUE
     Route: 048
     Dates: start: 20010101
  2. PROVIGIL [Suspect]
     Route: 048
     Dates: start: 20100601, end: 20100801
  3. PROVIGIL [Suspect]
     Indication: DEPRESSION
     Route: 048
     Dates: start: 20020101

REACTIONS (4)
  - DRUG INEFFECTIVE FOR UNAPPROVED INDICATION [None]
  - WEIGHT INCREASED [None]
  - SOMNOLENCE [None]
  - SURGERY [None]
